FAERS Safety Report 8213935-9 (Version None)
Quarter: 2012Q1

REPORT INFORMATION
  Report Type: 
  Country: None (occurrence: None)
  Receive Date: 20120316
  Receipt Date: 20120307
  Transmission Date: 20120608
  Serious: Yes (Hospitalization)
  Sender: FDA-Public Use
  Company Number: CH-ELI_LILLY_AND_COMPANY-CH201203001930

PATIENT
  Sex: Male
  Weight: 65 kg

DRUGS (1)
  1. EFFIENT [Suspect]
     Dosage: 60 MG, UNK
     Dates: start: 20111220, end: 20120207

REACTIONS (2)
  - GASTRIC ULCER [None]
  - HAEMORRHAGE [None]
